FAERS Safety Report 6359593-X (Version None)
Quarter: 2009Q3

REPORT INFORMATION
  Report Type: 
  Country: None (occurrence: None)
  Receive Date: 20090917
  Receipt Date: 20090911
  Transmission Date: 20100115
  Serious: Yes (Life-Threatening)
  Sender: FDA-Public Use
  Company Number: IT-GENENTECH-289419

PATIENT
  Sex: Male

DRUGS (1)
  1. MABTHERA [Suspect]
     Indication: FOLLICLE CENTRE LYMPHOMA, FOLLICULAR GRADE I, II, III REFRACTORY
     Dosage: UNK
     Route: 042
     Dates: start: 20090819, end: 20090819

REACTIONS (2)
  - ACUTE RESPIRATORY FAILURE [None]
  - LARYNGEAL OEDEMA [None]
